FAERS Safety Report 23592590 (Version 1)
Quarter: 2024Q1

REPORT INFORMATION
  Report Type: Spontaneous
  Country: US (occurrence: US)
  Receive Date: 20240304
  Receipt Date: 20240304
  Transmission Date: 20240410
  Serious: No
  Sender: FDA-Public Use
  Company Number: US-PERRIGO-23US009100

PATIENT
  Sex: Male
  Weight: 87.075 kg

DRUGS (14)
  1. NICOTINE POLACRILEX [Suspect]
     Active Substance: NICOTINE
     Indication: Smoking cessation therapy
     Dosage: 2 MG, 15 OR MORE TIMES DAILY
     Route: 002
  2. OXYGEN [Concomitant]
     Active Substance: OXYGEN
     Indication: Chronic obstructive pulmonary disease
     Dosage: 5 L, PRN
     Route: 065
     Dates: start: 2017
  3. HYDROXYZINE [Concomitant]
     Active Substance: HYDROXYZINE HYDROCHLORIDE
     Indication: Anxiety
     Dosage: UNK, BID
     Route: 065
     Dates: start: 202208, end: 202307
  4. HYDROXYZINE [Concomitant]
     Active Substance: HYDROXYZINE HYDROCHLORIDE
     Dosage: UNK, QID
     Route: 065
     Dates: start: 202307, end: 202308
  5. HYDROXYZINE [Concomitant]
     Active Substance: HYDROXYZINE HYDROCHLORIDE
     Dosage: UNK, BID
     Route: 065
     Dates: start: 202308, end: 20230811
  6. HYDROXYZINE [Concomitant]
     Active Substance: HYDROXYZINE HYDROCHLORIDE
     Dosage: UNK
     Route: 065
     Dates: start: 20230812
  7. KLONOPIN [Concomitant]
     Active Substance: CLONAZEPAM
     Indication: Stress
     Dosage: 2 MG, QD
     Route: 065
  8. NICOTINE [Concomitant]
     Active Substance: NICOTINE
     Indication: Smoking cessation therapy
     Dosage: 21  MG, UNK
     Route: 065
     Dates: start: 20230703, end: 20230812
  9. NICOTINE [Concomitant]
     Active Substance: NICOTINE
     Dosage: 14 MG, UNK
     Route: 065
     Dates: start: 20230813
  10. BUSPAR [Concomitant]
     Active Substance: BUSPIRONE HYDROCHLORIDE
     Indication: Anxiety
     Dosage: UNK
     Route: 065
  11. DEPAKOTE [Concomitant]
     Active Substance: DIVALPROEX SODIUM
     Indication: Bipolar disorder
     Dosage: UNK
     Route: 065
  12. INVEGA [Concomitant]
     Active Substance: PALIPERIDONE
     Indication: Stress
     Dosage: UNK
     Route: 065
  13. INVEGA [Concomitant]
     Active Substance: PALIPERIDONE
     Indication: Psychotic disorder
  14. CANNABIS SATIVA SUBSP. INDICA TOP [Concomitant]
     Active Substance: CANNABIS SATIVA SUBSP. INDICA TOP
     Indication: Substance use
     Dosage: UNK
     Route: 065
     Dates: start: 2022, end: 2022

REACTIONS (3)
  - Heart rate increased [Recovered/Resolved]
  - Incorrect dose administered [Unknown]
  - Wrong technique in product usage process [Unknown]

NARRATIVE: CASE EVENT DATE: 20230101
